FAERS Safety Report 4740342-3 (Version None)
Quarter: 2005Q3

REPORT INFORMATION
  Report Type: 
  Country: None (occurrence: None)
  Receive Date: 20050809
  Receipt Date: 20050809
  Transmission Date: 20060218
  Serious: Yes (Hospitalization)
  Sender: FDA-Public Use
  Company Number: None

PATIENT
  Sex: Male
  Weight: 117.9352 kg

DRUGS (2)
  1. IFOSFAMIDE [Suspect]
     Indication: SARCOMA
     Dosage: 5500 MG INTRAVENOUS
     Route: 042
     Dates: start: 20050725, end: 20050728
  2. EPIRUBICIN [Suspect]
     Indication: SARCOMA
     Dosage: 48 MG INTRAVENOUS
     Route: 042
     Dates: start: 20050725, end: 20050728

REACTIONS (4)
  - CHILLS [None]
  - PYREXIA [None]
  - REFUSAL OF TREATMENT BY PATIENT [None]
  - TRANSFUSION REACTION [None]
